FAERS Safety Report 6205981-1 (Version None)
Quarter: 2009Q2

REPORT INFORMATION
  Report Type: 
  Country: None (occurrence: None)
  Receive Date: 20090527
  Receipt Date: 20090527
  Transmission Date: 20091009
  Serious: No
  Sender: FDA-Public Use
  Company Number: None

PATIENT
  Sex: Male
  Weight: 89.2 kg

DRUGS (3)
  1. CISPLATIN [Suspect]
     Dosage: 53 MG
     Dates: end: 20090518
  2. ERBITUX [Suspect]
     Dosage: 532 MG
     Dates: end: 20090518
  3. TAXOL [Suspect]
     Dosage: 106 MG
     Dates: end: 20090518

REACTIONS (2)
  - ANGINA PECTORIS [None]
  - PERICARDITIS [None]
